FAERS Safety Report 4896016-1 (Version None)
Quarter: 2005Q4

REPORT INFORMATION
  Report Type: 
  Country: None (occurrence: None)
  Receive Date: 20051220
  Receipt Date: 20050223
  Transmission Date: 20060501
  Serious: Yes (Other)
  Sender: FDA-Public Use
  Company Number: 396707

PATIENT
  Sex: Female

DRUGS (2)
  1. TAMIFLU [Suspect]
  2. ADVIL [Concomitant]

REACTIONS (8)
  - ABDOMINAL PAIN UPPER [None]
  - BURNING SENSATION [None]
  - HEPATITIS [None]
  - JAUNDICE [None]
  - PYREXIA [None]
  - RASH [None]
  - TOXIC EPIDERMAL NECROLYSIS [None]
  - URTICARIA [None]
